FAERS Safety Report 21763336 (Version 2)
Quarter: 2022Q4

REPORT INFORMATION
  Report Type: Spontaneous
  Country: JP (occurrence: JP)
  Receive Date: 20221221
  Receipt Date: 20221226
  Transmission Date: 20230112
  Serious: Yes (Life-Threatening, Hospitalization, Other)
  Sender: FDA-Public Use
  Company Number: JP-TAKEDA-2022TJP079142

PATIENT

DRUGS (1)
  1. VECTIBIX [Suspect]
     Active Substance: PANITUMUMAB
     Indication: Colon cancer
     Dosage: UNK, Q2WK
     Route: 040

REACTIONS (3)
  - Cystitis haemorrhagic [Unknown]
  - Postrenal failure [Recovering/Resolving]
  - Nephrostomy [Unknown]

NARRATIVE: CASE EVENT DATE: 20221216
